FAERS Safety Report 5489241-2 (Version None)
Quarter: 2007Q4

REPORT INFORMATION
  Report Type: 
  Country: None (occurrence: None)
  Receive Date: 20071016
  Receipt Date: 20071010
  Transmission Date: 20080405
  Serious: Yes (Other)
  Sender: FDA-Public Use
  Company Number: 163-21880-07050831

PATIENT
  Age: 60 Year
  Sex: Male

DRUGS (5)
  1. REVLIMID [Suspect]
     Indication: MULTIPLE MYELOMA
     Dosage: 25 MG, DAILY, ORAL; 10 MG, DAILY X 28 DAYS, ORAL
     Route: 048
     Dates: start: 20061101, end: 20070101
  2. REVLIMID [Suspect]
     Indication: MYELODYSPLASTIC SYNDROME
     Dosage: 25 MG, DAILY, ORAL; 10 MG, DAILY X 28 DAYS, ORAL
     Route: 048
     Dates: start: 20061101, end: 20070101
  3. REVLIMID [Suspect]
     Indication: MULTIPLE MYELOMA
     Dosage: 25 MG, DAILY, ORAL; 10 MG, DAILY X 28 DAYS, ORAL
     Route: 048
     Dates: start: 20070604
  4. REVLIMID [Suspect]
     Indication: MYELODYSPLASTIC SYNDROME
     Dosage: 25 MG, DAILY, ORAL; 10 MG, DAILY X 28 DAYS, ORAL
     Route: 048
     Dates: start: 20070604
  5. EPOGEN [Concomitant]

REACTIONS (2)
  - MYELODYSPLASTIC SYNDROME [None]
  - WHITE BLOOD CELL COUNT DECREASED [None]
